FAERS Safety Report 15061908 (Version 1)
Quarter: 2018Q2

REPORT INFORMATION
  Report Type: Spontaneous
  Country: US (occurrence: US)
  Receive Date: 20180605
  Receipt Date: 20180605
  Transmission Date: 20180720
  Serious: Yes (Hospitalization)
  Sender: FDA-Public Use
  Company Number: None

PATIENT
  Age: 31 Year
  Sex: Female
  Weight: 64.9 kg

DRUGS (2)
  1. PACLITAXEL 6 MG/ML 50 ML VIAL HOSPIRA [Suspect]
     Active Substance: PACLITAXEL
     Dates: start: 20180531
  2. PACLITAXEL 6 MG/ML 50 ML VIAL HOSPIRA [Suspect]
     Active Substance: PACLITAXEL
     Indication: BREAST CANCER
     Route: 042
     Dates: start: 20180524, end: 20180531

REACTIONS (3)
  - Feeling hot [None]
  - Paraesthesia oral [None]
  - Nausea [None]

NARRATIVE: CASE EVENT DATE: 20180531
